FAERS Safety Report 8205801-X (Version None)
Quarter: 2012Q1

REPORT INFORMATION
  Report Type: 
  Country: None (occurrence: None)
  Receive Date: 20120313
  Receipt Date: 20120301
  Transmission Date: 20120608
  Serious: Yes (Other)
  Sender: FDA-Public Use
  Company Number: US-ELI_LILLY_AND_COMPANY-US201203000627

PATIENT
  Sex: Male

DRUGS (9)
  1. FORTEO [Suspect]
     Indication: OSTEOPOROSIS
     Dosage: 20 UG, QD
     Dates: start: 20111001
  2. PROCARDIA                          /00340701/ [Concomitant]
  3. LASIX [Concomitant]
  4. VASOTEC [Concomitant]
  5. FOLIC ACID [Concomitant]
  6. HYDROCHLOROTHIAZIDE [Concomitant]
  7. CALCIUM [Concomitant]
  8. MULTI-VITAMINS [Concomitant]
  9. ASPIRIN [Concomitant]

REACTIONS (5)
  - FRACTURED SACRUM [None]
  - FALL [None]
  - LUMBAR VERTEBRAL FRACTURE [None]
  - CONFUSIONAL STATE [None]
  - MUSCULOSKELETAL DISCOMFORT [None]
